FAERS Safety Report 7791730-2 (Version None)
Quarter: 2011Q4

REPORT INFORMATION
  Report Type: 
  Country: None (occurrence: None)
  Receive Date: 20111003
  Receipt Date: 20110927
  Transmission Date: 20120403
  Serious: Yes (Other)
  Sender: FDA-Public Use
  Company Number: DE-AMGEN-DEUCT2011046198

PATIENT
  Age: 69 Year
  Sex: Male

DRUGS (10)
  1. LANTUS [Concomitant]
  2. KEVATRIL [Concomitant]
     Dosage: 3 MG, UNK
  3. ACTAPRIL [Concomitant]
  4. PANITUMUMAB [Suspect]
     Indication: GASTROOESOPHAGEAL CANCER
     Dosage: 9 MG/M2, UNK
     Dates: start: 20110801
  5. CISPLATIN [Concomitant]
     Dosage: 60 MG/M2, UNK
     Route: 042
     Dates: start: 20110802
  6. CAPECITABINE [Concomitant]
     Dosage: 625 MG/M2, UNK
     Route: 048
     Dates: start: 20110802
  7. METOCLOPRAMIDE HYDROCHLORIDE [Concomitant]
     Dosage: UNK MG, UNK
  8. EMEND [Concomitant]
     Dosage: 125 UNK, UNK
  9. EPIRUBICIN [Concomitant]
     Dosage: 50 MG/M2, UNK
     Route: 042
     Dates: start: 20110802
  10. DEXAMETHASONE [Concomitant]
     Dosage: 8 MG, UNK

REACTIONS (1)
  - ULCER [None]
